FAERS Safety Report 6911748-9 (Version None)
Quarter: 2010Q3

REPORT INFORMATION
  Report Type: 
  Country: None (occurrence: None)
  Receive Date: 20100806
  Receipt Date: 20100728
  Transmission Date: 20110219
  Serious: Yes (Other)
  Sender: FDA-Public Use
  Company Number: US-CELGENEUS-163-21880-10050703

PATIENT
  Sex: Female

DRUGS (1)
  1. REVLIMID [Suspect]
     Indication: MULTIPLE MYELOMA
     Route: 048
     Dates: start: 20091101

REACTIONS (9)
  - DIARRHOEA [None]
  - DYSURIA [None]
  - FATIGUE [None]
  - MOUTH ULCERATION [None]
  - POLYP [None]
  - RASH [None]
  - STOMATITIS [None]
  - URINARY INCONTINENCE [None]
  - VAGINAL HAEMORRHAGE [None]
